FAERS Safety Report 20025304 (Version 1)
Quarter: 2021Q4

REPORT INFORMATION
  Report Type: Spontaneous
  Country: MX (occurrence: MX)
  Receive Date: 20211102
  Receipt Date: 20211102
  Transmission Date: 20220303
  Serious: Yes (Hospitalization, Disabling)
  Sender: FDA-Public Use
  Company Number: MX-ALVOGEN-2021-ALVOGEN-117717

PATIENT
  Age: 73 Year
  Sex: Female
  Weight: 80 kg

DRUGS (7)
  1. TENORMIN [Suspect]
     Active Substance: ATENOLOL
     Indication: Blood pressure management
     Route: 048
  2. AMLODIPINE MALEATE [Suspect]
     Active Substance: AMLODIPINE MALEATE
     Indication: Balance disorder
     Route: 065
  3. HYDROCHLOROTHIAZIDE\VALSARTAN [Concomitant]
     Active Substance: HYDROCHLOROTHIAZIDE\VALSARTAN
     Indication: Product prescribing issue
     Dosage: 160 /12.5 MG,1 TABLET ONCE A DAY
     Route: 048
  4. ASPIRIN [Concomitant]
     Active Substance: ASPIRIN
     Indication: Myocardial infarction
     Dosage: 100 MG 1 TABLET A DAY
     Route: 048
     Dates: start: 2011
  5. VENLAFAXINE [Concomitant]
     Active Substance: VENLAFAXINE HYDROCHLORIDE
     Indication: Depression
     Dosage: 1 TABLET A DAY ORALLY
     Route: 048
  6. ALLOPURINOL [Concomitant]
     Active Substance: ALLOPURINOL
     Indication: Blood uric acid abnormal
     Dosage: 1 TABLET A DAY
     Route: 048
  7. AMLODIPINE BESYLATE [Concomitant]
     Active Substance: AMLODIPINE BESYLATE
     Indication: Balance disorder
     Dosage: 1 TABLET A DAY
     Route: 048
     Dates: start: 202102

REACTIONS (13)
  - Blindness unilateral [Not Recovered/Not Resolved]
  - Umbilical hernia [Recovering/Resolving]
  - Blood uric acid increased [Unknown]
  - Balance disorder [Recovering/Resolving]
  - Cataract [Not Recovered/Not Resolved]
  - Blood pressure abnormal [Recovering/Resolving]
  - Contusion [Not Recovered/Not Resolved]
  - Gait disturbance [Not Recovered/Not Resolved]
  - Peripheral swelling [Not Recovered/Not Resolved]
  - Tinnitus [Recovering/Resolving]
  - Gastrointestinal disorder [Not Recovered/Not Resolved]
  - Somnolence [Not Recovered/Not Resolved]
  - Product use issue [Unknown]

NARRATIVE: CASE EVENT DATE: 20150101
